FAERS Safety Report 6120611-5 (Version None)
Quarter: 2009Q1

REPORT INFORMATION
  Report Type: 
  Country: None (occurrence: None)
  Receive Date: 20090317
  Receipt Date: 20090306
  Transmission Date: 20090719
  Serious: Yes (Hospitalization, Other)
  Sender: FDA-Public Use
  Company Number: GB-JNJFOC-20090302143

PATIENT
  Age: 67 Year
  Sex: Female
  Weight: 83 kg

DRUGS (11)
  1. REMICADE [Suspect]
     Indication: RHEUMATOID ARTHRITIS
     Route: 042
  2. METHOTREXATE [Concomitant]
  3. PREDNISOLONE [Concomitant]
  4. BECLOMETHASONE DIPROPIONATE [Concomitant]
  5. CODEINE PHOSPHATE [Concomitant]
  6. ACETAMINOPHEN WITH PROPOXYPHENE HCL TAB [Concomitant]
  7. FRUSEMIDE [Concomitant]
  8. LANSOPRAZOLE [Concomitant]
  9. LOSARTAN [Concomitant]
  10. RELIFLEX [Concomitant]
  11. SALBUTAMOL [Concomitant]

REACTIONS (1)
  - CHOLECYSTECTOMY [None]
